FAERS Safety Report 4975218-X (Version None)
Quarter: 2006Q2

REPORT INFORMATION
  Report Type: 
  Country: None (occurrence: None)
  Receive Date: 20060417
  Receipt Date: 20060417
  Transmission Date: 20061013
  Serious: Yes (Disabling)
  Sender: FDA-Public Use
  Company Number: None

PATIENT
  Age: 32 Year
  Sex: Female
  Weight: 108.9 kg

DRUGS (1)
  1. MAGNESIUM OXIDE [Suspect]
     Indication: BLOOD MAGNESIUM DECREASED
     Dosage: 400 MG  BID   BUCCAL
     Route: 002
     Dates: start: 20060413, end: 20060413

REACTIONS (2)
  - FLUSHING [None]
  - PRURITUS [None]
